FAERS Safety Report 7434564-0 (Version None)
Quarter: 2011Q2

REPORT INFORMATION
  Report Type: 
  Country: None (occurrence: None)
  Receive Date: 20110425
  Receipt Date: 20110419
  Transmission Date: 20111010
  Serious: No
  Sender: FDA-Public Use
  Company Number: US-B.I. PHARMACEUTICALS,INC./RIDGEFIELD-2011-BP-01221BP

PATIENT
  Sex: Male

DRUGS (1)
  1. PRADAXA [Suspect]
     Indication: ATRIAL FIBRILLATION
     Dosage: 300 MG
     Route: 048
     Dates: start: 20101202, end: 20110201

REACTIONS (6)
  - THROAT IRRITATION [None]
  - DYSPHAGIA [None]
  - ABDOMINAL DISTENSION [None]
  - SENSATION OF FOREIGN BODY [None]
  - ABDOMINAL PAIN UPPER [None]
  - DRY MOUTH [None]
